FAERS Safety Report 24263963 (Version 1)
Quarter: 2024Q3

REPORT INFORMATION
  Report Type: Report from Study
  Country: AR (occurrence: AR)
  Receive Date: 20240829
  Receipt Date: 20240829
  Transmission Date: 20241016
  Serious: Yes (Other)
  Sender: ABBVIE
  Company Number: AR-ABBVIE-5890671

PATIENT
  Sex: Female

DRUGS (1)
  1. SKYRIZI [Suspect]
     Active Substance: RISANKIZUMAB-RZAA
     Indication: Psoriatic arthropathy
     Dosage: END DATE 2024?FORM STRENGTH 150MG
     Route: 058
     Dates: start: 20240215

REACTIONS (5)
  - Tuberculosis [Not Recovered/Not Resolved]
  - Underweight [Unknown]
  - Blood disorder [Unknown]
  - Angina pectoris [Unknown]
  - Bronchitis [Unknown]

NARRATIVE: CASE EVENT DATE: 20240101
